FAERS Safety Report 7009341-5 (Version None)
Quarter: 2010Q3

REPORT INFORMATION
  Report Type: 
  Country: None (occurrence: None)
  Receive Date: 20100921
  Receipt Date: 20100917
  Transmission Date: 20110219
  Serious: Yes (Hospitalization)
  Sender: FDA-Public Use
  Company Number: SP03129

PATIENT
  Age: 22 Year
  Sex: Female

DRUGS (2)
  1. VISICOL [Suspect]
     Indication: ENDOSCOPY LARGE BOWEL
     Dosage: 50 GM,ORAL
     Route: 048
     Dates: start: 20100819, end: 20100819
  2. MAGNESIUM CITRATE [Concomitant]

REACTIONS (3)
  - ASTHENIA [None]
  - BLOOD POTASSIUM DECREASED [None]
  - HYPOAESTHESIA [None]
